FAERS Safety Report 8975673 (Version 1)
Quarter: 2012Q4

REPORT INFORMATION
  Report Type: 
  Country: US (occurrence: US)
  Receive Date: 20121219
  Receipt Date: 20121219
  Transmission Date: 20130627
  Serious: No
  Sender: FDA-Public Use
  Company Number: US-AMGEN-USASP2012069308

PATIENT
  Age: 70 Year
  Sex: Female
  Weight: 60.32 kg

DRUGS (5)
  1. PROLIA [Suspect]
     Indication: OSTEOPOROSIS POSTMENOPAUSAL
     Dosage: UNK
     Route: 058
     Dates: start: 20120926
  2. ZOCOR [Concomitant]
     Dosage: 5 mg, UNK
  3. TOPROL [Concomitant]
     Dosage: 25 mg, UNK
  4. AMBIEN [Concomitant]
     Dosage: UNK
  5. NEXIUM                             /01479302/ [Concomitant]
     Dosage: UNK

REACTIONS (4)
  - Pain in jaw [Recovering/Resolving]
  - Headache [Unknown]
  - Ear pain [Unknown]
  - Paraesthesia [Unknown]
